FAERS Safety Report 6264550-8 (Version None)
Quarter: 2009Q3

REPORT INFORMATION
  Report Type: 
  Country: None (occurrence: None)
  Receive Date: 20090710
  Receipt Date: 20090701
  Transmission Date: 20100115
  Serious: Yes (Hospitalization)
  Sender: FDA-Public Use
  Company Number: AU-AVENTIS-200916608GDDC

PATIENT

DRUGS (2)
  1. DOCETAXEL [Suspect]
     Dosage: DOSE: UNK
     Route: 042
  2. AVASTIN [Suspect]
     Dosage: DOSE: UNK

REACTIONS (1)
  - ADVERSE EVENT [None]
